FAERS Safety Report 23177869 (Version 1)
Quarter: 2023Q4

REPORT INFORMATION
  Report Type: Spontaneous
  Country: US (occurrence: None)
  Receive Date: 20231113
  Receipt Date: 20231113
  Transmission Date: 20240110
  Serious: No
  Sender: FDA-Public Use
  Company Number: None

PATIENT
  Age: 76 Year
  Sex: Female

DRUGS (1)
  1. SILDENAFIL CITRATE [Suspect]
     Active Substance: SILDENAFIL CITRATE
     Indication: Pulmonary arterial hypertension
     Dosage: 20MG 3 TIMES DAILY PO?
     Route: 048
     Dates: start: 202310

REACTIONS (7)
  - Diarrhoea [None]
  - Headache [None]
  - Dyspnoea [None]
  - Abdominal discomfort [None]
  - Rhinorrhoea [None]
  - Nasal congestion [None]
  - Myalgia [None]

NARRATIVE: CASE EVENT DATE: 20231110
